FAERS Safety Report 9731282 (Version 2)
Quarter: 2014Q2

REPORT INFORMATION
  Report Type: Other
  Country: US (occurrence: US)
  Receive Date: 20131205
  Receipt Date: 20140527
  Transmission Date: 20141212
  Serious: Yes (Other)
  Sender: FDA-Public Use
  Company Number: US-LUPIN PHARMACEUTICALS INC.-2013-01915

PATIENT
  Age: 35 Year
  Sex: Female
  Weight: 113 kg

DRUGS (11)
  1. QUETIAPINE [Suspect]
     Indication: PRODUCT USED FOR UNKNOWN INDICATION
     Route: 065
  2. FENTANYL [Suspect]
     Indication: ANAESTHETIC PREMEDICATION
     Route: 065
  3. FENTANYL [Suspect]
     Route: 042
  4. PROPOFOL [Suspect]
     Indication: ANAESTHESIA
     Route: 065
  5. LAMOTRIGINE [Concomitant]
     Indication: PRODUCT USED FOR UNKNOWN INDICATION
     Route: 065
  6. VENLAFAXINE XR [Concomitant]
     Indication: PRODUCT USED FOR UNKNOWN INDICATION
     Route: 065
  7. MIDAZOLAM [Concomitant]
     Indication: ANAESTHETIC PREMEDICATION
     Route: 042
  8. LIDOCAINE [Concomitant]
     Indication: ANAESTHESIA
     Route: 065
  9. SUCCINYLCHOLINE [Concomitant]
     Indication: ANAESTHESIA
     Route: 065
  10. DESFLURANE [Concomitant]
     Indication: ANAESTHESIA
     Route: 065
  11. DESFLURANE [Concomitant]
     Route: 065

REACTIONS (1)
  - Hypotension [Recovered/Resolved]
